FAERS Safety Report 22055729 (Version 1)
Quarter: 2023Q1

REPORT INFORMATION
  Report Type: Spontaneous
  Country: US (occurrence: US)
  Receive Date: 20230302
  Receipt Date: 20230302
  Transmission Date: 20230418
  Serious: Yes (Other)
  Sender: FDA-Public Use
  Company Number: US-BRISTOL-MYERS SQUIBB COMPANY-2023-029258

PATIENT
  Age: 62 Year
  Sex: Female

DRUGS (1)
  1. REVLIMID [Suspect]
     Active Substance: LENALIDOMIDE
     Indication: Plasma cell myeloma
     Dosage: DAILY FOR 7 DAYS ON AND 7 DAYS OFF
     Route: 048
     Dates: start: 202209

REACTIONS (4)
  - Cardiac disorder [Unknown]
  - Bone disorder [Unknown]
  - Off label use [Unknown]
  - Malaise [Unknown]
